FAERS Safety Report 10192987 (Version 2)
Quarter: 2014Q2

REPORT INFORMATION
  Report Type: Report from Study
  Country: BR (occurrence: BR)
  Receive Date: 20140524
  Receipt Date: 20140619
  Transmission Date: 20141212
  Serious: Yes (Hospitalization, Other)
  Sender: FDA-Public Use
  Company Number: PHHY2014BR063028

PATIENT
  Age: 15 Year
  Sex: Female
  Weight: 42 kg

DRUGS (4)
  1. ZOTEON PODHALER [Suspect]
     Indication: CYSTIC FIBROSIS
     Dosage: 8 DF, DAILY
     Route: 055
     Dates: start: 20140320, end: 20140420
  2. ZOTEON PODHALER [Suspect]
     Dosage: 8 DF, DAILY
     Route: 055
  3. PULMOZYME [Concomitant]
     Indication: NASOPHARYNGITIS
     Dosage: 1 DF, DAILY
     Route: 055
  4. PULMOZYME [Concomitant]
     Indication: CYSTIC FIBROSIS
     Dosage: 1 DF, DAILY
     Route: 055

REACTIONS (3)
  - Lung infection [Recovered/Resolved]
  - Increased bronchial secretion [Recovered/Resolved]
  - Pyrexia [Recovered/Resolved]
